FAERS Safety Report 7772320-4 (Version None)
Quarter: 2011Q3

REPORT INFORMATION
  Report Type: 
  Country: None (occurrence: None)
  Receive Date: 20110922
  Receipt Date: 20100604
  Transmission Date: 20111222
  Serious: Yes (Other)
  Sender: FDA-Public Use
  Company Number: US-ASTRAZENECA-2010SE26650

PATIENT
  Age: 31 Year
  Sex: Female
  Weight: 67 kg

DRUGS (12)
  1. CARBAMAZEPINE [Concomitant]
     Dates: start: 20000724
  2. TRAZODONE HYDROCHLORIDE [Concomitant]
     Indication: BIPOLAR DISORDER
     Dates: start: 19990217
  3. WELLBUTRIN [Concomitant]
     Dates: start: 20020101
  4. PROZAC [Concomitant]
     Indication: BIPOLAR DISORDER
     Dates: start: 19990217
  5. HYDROXYZINE [Concomitant]
     Dates: start: 20000724
  6. VICODIN [Concomitant]
     Indication: PAIN
     Dosage: ONE TO TWO TABS  4 TO 6 PRN
     Dates: start: 20020123
  7. SEROQUEL [Suspect]
     Route: 048
     Dates: start: 20000724
  8. DEPAKOTE [Concomitant]
     Indication: BIPOLAR DISORDER
     Dates: start: 19990217
  9. NAPROSYN [Concomitant]
     Indication: MUSCLE SPASMS
  10. EFFEXOR XR [Concomitant]
     Dates: start: 20000725
  11. LEVOTHYROXINE SODIUM [Concomitant]
     Dates: start: 20020101
  12. NEURONTIN [Concomitant]
     Dates: start: 20020101

REACTIONS (4)
  - DIABETIC KETOACIDOSIS [None]
  - TYPE 1 DIABETES MELLITUS [None]
  - DIABETES MELLITUS [None]
  - GESTATIONAL DIABETES [None]
